FAERS Safety Report 21747629 (Version 1)
Quarter: 2022Q4

REPORT INFORMATION
  Report Type: Report from Study
  Country: US (occurrence: US)
  Receive Date: 20221219
  Receipt Date: 20221219
  Transmission Date: 20230113
  Serious: Yes (Other)
  Sender: FDA-Public Use
  Company Number: US-MYLANLABS-2022M1139970

PATIENT
  Age: 46 Year
  Sex: Female
  Weight: 79.4 kg

DRUGS (17)
  1. LIDOCAINE PATCH [Suspect]
     Active Substance: LIDOCAINE
     Indication: Infusion site pain
     Dosage: UNK (START: ??-??-2022)
     Route: 065
  2. METHIMAZOLE [Suspect]
     Active Substance: METHIMAZOLE
     Indication: Product used for unknown indication
     Dosage: UNK
     Route: 065
  3. REMODULIN [Suspect]
     Active Substance: TREPROSTINIL
     Indication: Pulmonary arterial hypertension
     Dosage: 0.050 MICROGRAM/KILOGRAM
     Route: 058
     Dates: start: 20211029
  4. REMODULIN [Suspect]
     Active Substance: TREPROSTINIL
     Dosage: 0.025 MICROGRAM/KILOGRAM
     Route: 058
  5. REMODULIN [Suspect]
     Active Substance: TREPROSTINIL
     Dosage: 0.045 MICROGRAM/KILOGRAM
     Route: 058
  6. ORENITRAM [Suspect]
     Active Substance: TREPROSTINIL
     Indication: Product used for unknown indication
     Dosage: UNK
     Route: 048
  7. ORENITRAM [Suspect]
     Active Substance: TREPROSTINIL
     Dosage: UNK
     Route: 048
  8. ORENITRAM [Suspect]
     Active Substance: TREPROSTINIL
     Dosage: 1 MILLIGRAM, TID
     Route: 048
     Dates: start: 20221102
  9. ORENITRAM [Suspect]
     Active Substance: TREPROSTINIL
     Dosage: 1 MILLIGRAM
     Route: 048
     Dates: start: 20221103
  10. ORENITRAM [Suspect]
     Active Substance: TREPROSTINIL
     Dosage: 5 MILLIGRAM, TID
     Route: 048
     Dates: start: 202211
  11. ORENITRAM [Suspect]
     Active Substance: TREPROSTINIL
     Dosage: 3 MILLIGRAM, TID
     Route: 048
     Dates: start: 202211
  12. ORENITRAM [Suspect]
     Active Substance: TREPROSTINIL
     Dosage: 9 MILLIGRAM, TID (??-??-2022)
     Route: 048
  13. ADEMPAS [Suspect]
     Active Substance: RIOCIGUAT
     Indication: Product used for unknown indication
     Dosage: UNK (??-??-2022)
     Route: 065
  14. OPSUMIT [Suspect]
     Active Substance: MACITENTAN
     Indication: Product used for unknown indication
     Dosage: UNK (??-??-2022)
     Route: 065
  15. BENADRYL [Suspect]
     Active Substance: DIPHENHYDRAMINE HYDROCHLORIDE
     Indication: Product used for unknown indication
     Dosage: UNK (START JUN-2022)
     Route: 065
  16. LECITHIN\POLOXAMER 407 [Suspect]
     Active Substance: LECITHIN\POLOXAMER 407
     Indication: Product used for unknown indication
     Dosage: UNK
     Route: 065
  17. UPTRAVI [Suspect]
     Active Substance: SELEXIPAG
     Indication: Product used for unknown indication
     Dosage: UNK
     Route: 065

REACTIONS (25)
  - Diarrhoea [Recovered/Resolved]
  - Infusion site pain [Not Recovered/Not Resolved]
  - Infusion site rash [Unknown]
  - Infusion site swelling [Unknown]
  - Infusion site bruising [Unknown]
  - Infusion site exfoliation [Unknown]
  - Infusion site pruritus [Unknown]
  - Infusion site infection [Unknown]
  - Lethargy [Unknown]
  - Palpitations [Unknown]
  - Chest pain [Unknown]
  - Anxiety [Unknown]
  - Heart rate abnormal [Unknown]
  - Gastrooesophageal reflux disease [Unknown]
  - Abdominal distension [Not Recovered/Not Resolved]
  - Extra dose administered [Unknown]
  - Product use issue [Unknown]
  - Unintentional medical device removal [Unknown]
  - Therapy non-responder [Unknown]
  - Intentional medical device removal by patient [Unknown]
  - Fatigue [Unknown]
  - Vomiting [Unknown]
  - Depressed mood [Unknown]
  - Nausea [Unknown]
  - Headache [Recovered/Resolved]

NARRATIVE: CASE EVENT DATE: 20220601
